FAERS Safety Report 8827859 (Version 1)
Quarter: 2012Q4

REPORT INFORMATION
  Report Type: 
  Country: US (occurrence: US)
  Receive Date: 20121008
  Receipt Date: 20121008
  Transmission Date: 20130627
  Serious: Yes (Other)
  Sender: FDA-Public Use
  Company Number: US-SANOFI-AVENTIS-2012SA071284

PATIENT
  Sex: Male

DRUGS (2)
  1. LANTUS [Suspect]
     Indication: DIABETIC
     Route: 058
  2. INSULIN, REGULAR [Suspect]
     Indication: DIABETIC
     Route: 058

REACTIONS (5)
  - Hypotension [Unknown]
  - Presyncope [Unknown]
  - Hypoglycaemia [Unknown]
  - Hypoglycaemia unawareness [None]
  - Glycosylated haemoglobin increased [None]
